FAERS Safety Report 4557257-6 (Version None)
Quarter: 2005Q1

REPORT INFORMATION
  Report Type: 
  Country: None (occurrence: None)
  Receive Date: 20050120
  Receipt Date: 20040827
  Transmission Date: 20050727
  Serious: No
  Sender: FDA-Public Use
  Company Number: PHEH2004US09347

PATIENT
  Age: 62 Year
  Sex: Female

DRUGS (4)
  1. CLINORIL [Concomitant]
     Dates: end: 20040701
  2. NEURONTIN [Concomitant]
     Indication: NEUROPATHIC PAIN
     Dosage: 300 MG, TID
     Route: 048
     Dates: start: 20040101
  3. COZAAR [Concomitant]
     Indication: HYPERTENSION
     Dosage: 50 MG, UNK
     Dates: start: 20040101
  4. TRILEPTAL [Suspect]
     Indication: NEUROPATHY
     Dosage: 300 MG, BID
     Route: 048
     Dates: start: 20040501, end: 20040801

REACTIONS (10)
  - ANXIETY [None]
  - EATING DISORDER [None]
  - EYE PAIN [None]
  - HEADACHE [None]
  - INSOMNIA [None]
  - MIGRAINE [None]
  - NAUSEA [None]
  - TINNITUS [None]
  - VISION BLURRED [None]
  - VOMITING [None]
